FAERS Safety Report 16638656 (Version 2)
Quarter: 2019Q3

REPORT INFORMATION
  Report Type: Report from Study
  Country: VN (occurrence: VN)
  Receive Date: 20190726
  Receipt Date: 20190929
  Transmission Date: 20191004
  Serious: Yes (Hospitalization)
  Sender: FDA-Public Use
  Company Number: PHHY2019VN169800

PATIENT
  Age: 37 Year
  Sex: Male
  Weight: 70 kg

DRUGS (1)
  1. FRAIZERON [Suspect]
     Active Substance: SECUKINUMAB
     Indication: PSORIASIS
     Dosage: 300 MG, UNK (POWDER FOR SOLUTION FOR INJECTION)
     Route: 058
     Dates: start: 20190515, end: 20190923

REACTIONS (2)
  - Liver abscess [Recovering/Resolving]
  - Abdominal pain lower [Unknown]

NARRATIVE: CASE EVENT DATE: 20190701
